FAERS Safety Report 20130327 (Version 1)
Quarter: 2021Q4

REPORT INFORMATION
  Report Type: Spontaneous
  Country: US (occurrence: None)
  Receive Date: 20211130
  Receipt Date: 20211130
  Transmission Date: 20220303
  Serious: Yes (Hospitalization)
  Sender: FDA-Public Use
  Company Number: None

PATIENT
  Age: 75 Year
  Sex: Female
  Weight: 63 kg

DRUGS (2)
  1. BARICITINIB [Suspect]
     Active Substance: BARICITINIB
     Indication: COVID-19
     Dosage: FREQUENCY : DAILY;?
     Route: 048
     Dates: start: 20211117, end: 20211126
  2. BARICITINIB [Suspect]
     Active Substance: BARICITINIB
     Indication: COVID-19 pneumonia

REACTIONS (6)
  - Gastrointestinal perforation [None]
  - Gastrointestinal haemorrhage [None]
  - Aspartate aminotransferase increased [None]
  - Anastomotic ulcer [None]
  - Melaena [None]
  - Infusion related reaction [None]

NARRATIVE: CASE EVENT DATE: 20211126
